FAERS Safety Report 5334748-1 (Version None)
Quarter: 2007Q2

REPORT INFORMATION
  Report Type: 
  Country: None (occurrence: None)
  Receive Date: 20070521
  Receipt Date: 20070502
  Transmission Date: 20071010
  Serious: Yes (Death, Hospitalization)
  Sender: FDA-Public Use
  Company Number: DAV-AE-ACY-07-011

PATIENT
  Age: 38 Year
  Sex: Male

DRUGS (1)
  1. ACYCLOVIR [Suspect]
     Indication: HERPES VIRUS INFECTION
     Dosage: 800MG IV Q12H
     Route: 042

REACTIONS (45)
  - ABDOMINAL DISTENSION [None]
  - ABDOMINAL RIGIDITY [None]
  - AGITATION [None]
  - BACK PAIN [None]
  - BACTERAEMIA [None]
  - BLISTER [None]
  - BLOOD CREATINE PHOSPHOKINASE INCREASED [None]
  - BLOOD FIBRINOGEN DECREASED [None]
  - BLOOD PRESSURE INCREASED [None]
  - COAGULOPATHY [None]
  - CONJUNCTIVAL HYPERAEMIA [None]
  - DEMENTIA ALZHEIMER'S TYPE [None]
  - DIALYSIS [None]
  - DISSEMINATED INTRAVASCULAR COAGULATION [None]
  - EMOTIONAL DISTRESS [None]
  - ENCEPHALOPATHY [None]
  - FIBRIN DEGRADATION PRODUCTS INCREASED [None]
  - GASTRITIS [None]
  - GASTROINTESTINAL MUCOSAL DISORDER [None]
  - HAEMOGLOBIN INCREASED [None]
  - HEPATIC NECROSIS [None]
  - HEPATIC STEATOSIS [None]
  - HEPATITIS VIRAL [None]
  - HEPATOSPLENOMEGALY [None]
  - HERPES ZOSTER DISSEMINATED [None]
  - HYPERGLYCAEMIA [None]
  - HYPERKALAEMIA [None]
  - MENTAL STATUS CHANGES [None]
  - METABOLIC ACIDOSIS [None]
  - MUCOSAL HAEMORRHAGE [None]
  - MULTI-ORGAN FAILURE [None]
  - OESOPHAGEAL HAEMORRHAGE [None]
  - OESOPHAGITIS [None]
  - OLIGURIA [None]
  - OSTEOARTHRITIS [None]
  - PLATELET COUNT DECREASED [None]
  - RASH GENERALISED [None]
  - RASH PAPULAR [None]
  - RESPIRATORY FAILURE [None]
  - SHOCK [None]
  - TONGUE DISORDER [None]
  - TONGUE ERUPTION [None]
  - TONGUE HAEMORRHAGE [None]
  - VENTRICULAR TACHYCARDIA [None]
  - WHITE BLOOD CELL COUNT INCREASED [None]
